FAERS Safety Report 7231480-4 (Version None)
Quarter: 2011Q1

REPORT INFORMATION
  Report Type: 
  Country: None (occurrence: None)
  Receive Date: 20110118
  Receipt Date: 20110113
  Transmission Date: 20110831
  Serious: Yes (Hospitalization)
  Sender: FDA-Public Use
  Company Number: GB-B.I. PHARMACEUTICALS,INC./RIDGEFIELD-2010-UK-00540UK

PATIENT
  Sex: Male

DRUGS (1)
  1. PRADAXA [Suspect]
     Indication: POSTOPERATIVE CARE
     Dosage: 220 MG
     Route: 048
     Dates: start: 20100426

REACTIONS (2)
  - WOUND SECRETION [None]
  - WOUND INFECTION [None]
